FAERS Safety Report 7655634 (Version 2)
Quarter: 2013Q3

REPORT INFORMATION
  Report Type: Spontaneous
  Country: US (occurrence: US)
  Receive Date: 20101104
  Receipt Date: 20130916
  Transmission Date: 20140515
  Serious: Yes (Other)
  Sender: FDA-Public Use
  Company Number: US-RANBAXY-2010US-39043

PATIENT
  Age: 72 Year
  Sex: Female

DRUGS (1)
  1. VERAPAMIL [Suspect]
     Indication: PRODUCT USED FOR UNKNOWN INDICATION
     Dosage: THREE 240 MG TABLETS , SINGLE
     Route: 048

REACTIONS (4)
  - Accidental overdose [Recovered/Resolved]
  - Atrioventricular block first degree [Recovered/Resolved]
  - Ventricular extrasystoles [Recovered/Resolved]
  - Toxicity to various agents [Recovered/Resolved]
